FAERS Safety Report 18176046 (Version 7)
Quarter: 2020Q4

REPORT INFORMATION
  Report Type: Spontaneous
  Country: US (occurrence: US)
  Receive Date: 20200820
  Receipt Date: 20201214
  Transmission Date: 20210113
  Serious: No
  Sender: FDA-Public Use
  Company Number: US-GLAXOSMITHKLINE-US2020AMR166441

PATIENT
  Age: 55 Year
  Sex: Female

DRUGS (3)
  1. ZEJULA [Suspect]
     Active Substance: NIRAPARIB
     Indication: OVARIAN CANCER
     Dosage: 200 MG
     Route: 048
     Dates: start: 20200810
  2. ZEJULA [Suspect]
     Active Substance: NIRAPARIB
     Dosage: 100 MG, QD
     Route: 048
  3. ZEJULA [Suspect]
     Active Substance: NIRAPARIB
     Dosage: 200 MG, QD
     Dates: end: 20201016

REACTIONS (15)
  - Stent placement [Unknown]
  - Ingrown hair [Unknown]
  - Acne [Unknown]
  - Anxiety [Recovering/Resolving]
  - Arthralgia [Unknown]
  - Constipation [Unknown]
  - Sleep disorder [Recovering/Resolving]
  - Dyspepsia [Unknown]
  - Off label use [Unknown]
  - Carbohydrate antigen 125 increased [Unknown]
  - Taste disorder [Unknown]
  - Pain in extremity [Unknown]
  - Platelet count decreased [Unknown]
  - Blood glucose increased [Unknown]
  - Heart rate increased [Unknown]

NARRATIVE: CASE EVENT DATE: 20201203
